FAERS Safety Report 7000660-5 (Version None)
Quarter: 2010Q3

REPORT INFORMATION
  Report Type: 
  Country: None (occurrence: None)
  Receive Date: 20100920
  Receipt Date: 20100512
  Transmission Date: 20110219
  Serious: Yes (Other)
  Sender: FDA-Public Use
  Company Number: US-ASTRAZENECA-2010SE21697

PATIENT
  Age: 20669 Day
  Sex: Male

DRUGS (3)
  1. SEROQUEL XR [Suspect]
     Route: 048
     Dates: start: 20100301, end: 20100415
  2. DIGOXIN [Suspect]
     Route: 065
     Dates: start: 20000101
  3. LINISOPRIL [Concomitant]
     Dates: start: 20100413

REACTIONS (1)
  - SUICIDAL IDEATION [None]
